FAERS Safety Report 17009301 (Version 1)
Quarter: 2020Q3

REPORT INFORMATION
  Report Type: Spontaneous
  Country: US (occurrence: US)
  Receive Date: 20191108
  Receipt Date: 20191108
  Transmission Date: 20201105
  Serious: No
  Sender: FDA-Public Use
  Company Number: US-HIKMA PHARMACEUTICALS USA INC.-US-H14001-19-02097

PATIENT
  Age: 37 Year
  Sex: Female
  Weight: 60.84 kg

DRUGS (4)
  1. EPIPEN [Suspect]
     Active Substance: EPINEPHRINE
     Indication: PRODUCT USED FOR UNKNOWN INDICATION
     Route: 065
  2. LEVOTHYROXINE. [Suspect]
     Active Substance: LEVOTHYROXINE
     Indication: PRODUCT USED FOR UNKNOWN INDICATION
     Route: 065
  3. CYANOCOBALAMIN. [Suspect]
     Active Substance: CYANOCOBALAMIN
     Indication: HYPOVITAMINOSIS
     Route: 042
     Dates: start: 20190325
  4. FERROUS SULFATE. [Suspect]
     Active Substance: FERROUS SULFATE
     Indication: PRODUCT USED FOR UNKNOWN INDICATION
     Route: 065

REACTIONS (1)
  - Expired product administered [Recovered/Resolved]

NARRATIVE: CASE EVENT DATE: 20190325
